FAERS Safety Report 12719801 (Version 1)
Quarter: 2016Q3

REPORT INFORMATION
  Report Type: Spontaneous
  Country: US (occurrence: US)
  Receive Date: 20160907
  Receipt Date: 20160907
  Transmission Date: 20161109
  Serious: No
  Sender: FDA-Public Use
  Company Number: US-JNJFOC-20160814607

PATIENT
  Age: 5 Decade
  Sex: Female
  Weight: 58.97 kg

DRUGS (3)
  1. SIMPONI ARIA [Suspect]
     Active Substance: GOLIMUMAB
     Indication: RHEUMATOID ARTHRITIS
     Dosage: 1X4ML VIAL (50MG)
     Route: 042
  2. SIMPONI ARIA [Suspect]
     Active Substance: GOLIMUMAB
     Indication: RHEUMATOID ARTHRITIS
     Route: 042
     Dates: start: 20160518
  3. SIMPONI ARIA [Suspect]
     Active Substance: GOLIMUMAB
     Indication: RHEUMATOID ARTHRITIS
     Route: 042
     Dates: start: 20160816

REACTIONS (5)
  - Phlebitis [Recovering/Resolving]
  - Inappropriate schedule of drug administration [Unknown]
  - Drug ineffective [Unknown]
  - Dehydration [Unknown]
  - Peripheral swelling [Unknown]
